FAERS Safety Report 8362032-0 (Version None)
Quarter: 2012Q2

REPORT INFORMATION
  Report Type: 
  Country: None (occurrence: None)
  Receive Date: 20120515
  Receipt Date: 20120510
  Transmission Date: 20120825
  Serious: Yes (Other)
  Sender: FDA-Public Use
  Company Number: US-PFIZER INC-2012115295

PATIENT

DRUGS (4)
  1. EFFEXOR XR [Suspect]
     Dosage: 37.5 MG
  2. NAPROXEN (ALEVE) [Suspect]
     Dosage: UNK
  3. IBUPROFEN (ADVIL) [Suspect]
     Dosage: UNK
  4. EFFEXOR [Suspect]
     Dosage: UNK

REACTIONS (4)
  - PAIN [None]
  - TOOTH DISORDER [None]
  - BACTERIAL INFECTION [None]
  - ABSCESS [None]
